FAERS Safety Report 13597969 (Version 4)
Quarter: 2017Q2

REPORT INFORMATION
  Report Type: Spontaneous
  Country: US (occurrence: US)
  Receive Date: 20170531
  Receipt Date: 20170606
  Transmission Date: 20170830
  Serious: No
  Sender: FDA-Public Use
  Company Number: US-009507513-1705USA007021

PATIENT
  Age: 30 Year
  Sex: Male

DRUGS (3)
  1. INTRON A [Suspect]
     Active Substance: INTERFERON ALFA-2B
     Indication: NEOPLASM MALIGNANT
     Dosage: 7 MILLION IU, TIW
     Route: 058
     Dates: start: 20160908
  2. INTRON A [Suspect]
     Active Substance: INTERFERON ALFA-2B
     Indication: NEOPLASM MALIGNANT
     Dosage: 18 MILLION IU, TIW
     Route: 058
     Dates: start: 20160908
  3. INTRON A [Suspect]
     Active Substance: INTERFERON ALFA-2B
     Dosage: 18 MILLION IU, TIW
     Route: 058
     Dates: start: 20160908

REACTIONS (2)
  - Alopecia [Unknown]
  - Fatigue [Unknown]

NARRATIVE: CASE EVENT DATE: 201704
